FAERS Safety Report 5849598-7 (Version None)
Quarter: 2008Q3

REPORT INFORMATION
  Report Type: 
  Country: None (occurrence: None)
  Receive Date: 20080819
  Receipt Date: 20080808
  Transmission Date: 20090109
  Serious: Yes (Other)
  Sender: FDA-Public Use
  Company Number: US-ROCHE-580341

PATIENT

DRUGS (3)
  1. BONIVA [Suspect]
     Indication: DRUG USE FOR UNKNOWN INDICATION
     Route: 042
  2. PLAVIX [Concomitant]
  3. UNSPECIFIED MEDICATIONS [Concomitant]
     Dosage: DRUG REPORTED AS ^SEVERAL OTHER MEDS^

REACTIONS (1)
  - HEPATITIS [None]
